FAERS Safety Report 6442746-X (Version None)
Quarter: 2009Q4

REPORT INFORMATION
  Report Type: 
  Country: None (occurrence: None)
  Receive Date: 20091117
  Receipt Date: 20091103
  Transmission Date: 20100525
  Serious: Yes (Other)
  Sender: FDA-Public Use
  Company Number: PHHY2009GB33151

PATIENT
  Sex: Male

DRUGS (5)
  1. EXJADE [Suspect]
     Indication: IRON OVERLOAD
     Dosage: 1250 MG DAILY FOR 5 DAYS A WEEK
     Route: 048
     Dates: start: 20090119
  2. EXJADE [Suspect]
     Dosage: 2000 MG/DAY
  3. EXJADE [Suspect]
     Dosage: 1750 MG/DAY
  4. CODEINE [Concomitant]
  5. DICLOFENAC [Concomitant]

REACTIONS (6)
  - FATIGUE [None]
  - MALAISE [None]
  - NAUSEA [None]
  - NEPHROLITHIASIS [None]
  - WEIGHT INCREASED [None]
  - YELLOW SKIN [None]
